FAERS Safety Report 7652094-8 (Version None)
Quarter: 2011Q3

REPORT INFORMATION
  Report Type: 
  Country: None (occurrence: None)
  Receive Date: 20110803
  Receipt Date: 20101213
  Transmission Date: 20111222
  Serious: Yes (Hospitalization, Other)
  Sender: FDA-Public Use
  Company Number: US-BAYER-200941137NA

PATIENT
  Age: 38 Year
  Sex: Female
  Weight: 145.46 kg

DRUGS (13)
  1. YASMIN [Suspect]
     Indication: PREMENSTRUAL SYNDROME
  2. LISINOPRIL [Concomitant]
  3. YASMIN [Suspect]
     Indication: CONTRACEPTION
     Dates: start: 20040101, end: 20071001
  4. PAXIL [Concomitant]
     Dosage: UNK
     Dates: start: 20070501
  5. MICROGESTIN 1.5/30 [Concomitant]
  6. ALBUTEROL SULFATE AUTOHALER [Concomitant]
     Route: 065
  7. ANTIBIOTICS [Concomitant]
     Indication: BRONCHITIS
     Dosage: UNK
     Dates: start: 20071001
  8. ADVIL LIQUI-GELS [Concomitant]
     Indication: PAIN
     Dosage: UNK
     Dates: start: 20070901, end: 20071001
  9. FLUOXETINE [Concomitant]
  10. LISINOPRIL AND HYDROCHLOROTHIAZIDE [Concomitant]
     Indication: BLOOD PRESSURE ABNORMAL
     Dosage: UNK
     Dates: start: 20070201
  11. NAPROSYN [Concomitant]
  12. PREDNISONE [Concomitant]
     Route: 065
  13. PROAIR HFA [Concomitant]
     Dosage: UNK

REACTIONS (2)
  - DEEP VEIN THROMBOSIS [None]
  - PULMONARY EMBOLISM [None]
